FAERS Safety Report 24674086 (Version 1)
Quarter: 2024Q4

REPORT INFORMATION
  Report Type: Spontaneous
  Country: RU (occurrence: RU)
  Receive Date: 20241128
  Receipt Date: 20241128
  Transmission Date: 20250114
  Serious: Yes (Other)
  Sender: ROCHE
  Company Number: RU-ROCHE-10000141487

PATIENT
  Sex: Female

DRUGS (8)
  1. CAPECITABINE [Suspect]
     Active Substance: CAPECITABINE
     Indication: Breast cancer
     Dosage: 2ND LINE THERAPY, 8 COURSES
     Route: 065
     Dates: start: 201902, end: 202004
  2. TRASTUZUMAB [Suspect]
     Active Substance: TRASTUZUMAB
     Indication: Breast cancer
     Dosage: 3 COURSES
     Route: 065
     Dates: start: 2017, end: 2019
  3. TRASTUZUMAB [Suspect]
     Active Substance: TRASTUZUMAB
     Dosage: 2ND LINE THERAPY, 8 COURSES?APR TO OCT/2020, 9 COURSES
     Route: 065
     Dates: start: 201902, end: 202004
  4. TRASTUZUMAB [Suspect]
     Active Substance: TRASTUZUMAB
     Dosage: 3RD LINE THERAPY, 6 COURSES
     Route: 065
     Dates: start: 202204, end: 202208
  5. PERTUZUMAB [Suspect]
     Active Substance: PERTUZUMAB
     Indication: Breast cancer
     Dosage: 3RD LINE THERAPY, 6 COURSES
     Route: 065
     Dates: start: 202204, end: 202208
  6. DOCETAXEL [Suspect]
     Active Substance: DOCETAXEL
     Indication: Breast cancer
     Dosage: 3RD LINE THERAPY, 6 COURSES
     Route: 065
     Dates: start: 202204, end: 202208
  7. GEMCITABINE [Suspect]
     Active Substance: GEMCITABINE
     Indication: Breast cancer
     Dosage: 1ST LINE THERAPY, 5 COURSES, GP REGIMEN
     Route: 065
     Dates: start: 201903, end: 201908
  8. CISPLATIN [Suspect]
     Active Substance: CISPLATIN
     Indication: Breast cancer
     Dosage: 1ST LINE THERAPY, 5 COURSES, GP REGIMEN
     Route: 065
     Dates: start: 201903, end: 201908

REACTIONS (7)
  - Metastases to soft tissue [Unknown]
  - Drug-induced liver injury [Unknown]
  - Asthenia [Unknown]
  - Dyspnoea exertional [Unknown]
  - Pelvic fluid collection [Unknown]
  - Pleural effusion [Unknown]
  - Mediastinal mass [Unknown]
